FAERS Safety Report 8762523 (Version 1)
Quarter: 2012Q4

REPORT INFORMATION
  Report Type: 
  Country: US (occurrence: US)
  Receive Date: 20120829
  Receipt Date: 20120829
  Transmission Date: 20130627
  Serious: No
  Sender: FDA-Public Use
  Company Number: US-PFIZER INC-2012211185

PATIENT
  Age: 53 Year
  Sex: Female
  Weight: 120 kg

DRUGS (1)
  1. ACCURETIC [Suspect]
     Indication: BLOOD PRESSURE ABNORMAL
     Dosage: Quinapril hydrochloride 20 mg / hydrochlorothiazide 12.5 mg, daily
     Route: 048
     Dates: start: 2012

REACTIONS (1)
  - Cough [Not Recovered/Not Resolved]
